FAERS Safety Report 8320439-1 (Version None)
Quarter: 2012Q2

REPORT INFORMATION
  Report Type: 
  Country: None (occurrence: None)
  Receive Date: 20120426
  Receipt Date: 20120426
  Transmission Date: 20120825
  Serious: Yes (Death, Other)
  Sender: FDA-Public Use
  Company Number: None

PATIENT
  Age: 34 Year
  Sex: Female
  Weight: 63.5036 kg

DRUGS (3)
  1. RIMSO SOLUTION [Suspect]
     Indication: CYSTITIS INTERSTITIAL
     Dosage: 2X TIME EVERY WEEK
     Dates: start: 19920101, end: 19970101
  2. ELMIRON [Suspect]
     Indication: BLADDER DISORDER
     Dosage: 3X DAY EVERYDAY
     Dates: start: 19950901
  3. ELMIRON [Suspect]
     Indication: BLADDER DISORDER
     Dosage: 3X DAY EVERYDAY
     Dates: start: 19950801

REACTIONS (11)
  - ALOPECIA [None]
  - WEIGHT DECREASED [None]
  - VOMITING [None]
  - URINARY BLADDER HAEMORRHAGE [None]
  - OFF LABEL USE [None]
  - FATIGUE [None]
  - MALAISE [None]
  - LOSS OF LIBIDO [None]
  - BLADDER DISORDER [None]
  - URINARY BLADDER ATROPHY [None]
  - BLISTER [None]
